FAERS Safety Report 5221886-7 (Version None)
Quarter: 2007Q1

REPORT INFORMATION
  Report Type: 
  Country: None (occurrence: None)
  Receive Date: 20070126
  Receipt Date: 20070126
  Transmission Date: 20070707
  Serious: Yes (Hospitalization)
  Sender: FDA-Public Use
  Company Number: None

PATIENT
  Age: 44 Year
  Sex: Female

DRUGS (1)
  1. CIPROFLOXACIN HCL [Suspect]
     Indication: CELLULITIS
     Dosage: 250 MG BID PO
     Route: 048
     Dates: start: 20070109, end: 20070115

REACTIONS (1)
  - GRAND MAL CONVULSION [None]
